FAERS Safety Report 7529047-3 (Version None)
Quarter: 2011Q2

REPORT INFORMATION
  Report Type: 
  Country: None (occurrence: None)
  Receive Date: 20110607
  Receipt Date: 20110602
  Transmission Date: 20111010
  Serious: Yes (Hospitalization)
  Sender: FDA-Public Use
  Company Number: US-SANOFI-AVENTIS-2011SA034621

PATIENT
  Age: 74 Year
  Sex: Male

DRUGS (7)
  1. LISINOPRIL [Concomitant]
  2. DABIGATRAN ETEXILATE [Concomitant]
  3. MULTAQ [Suspect]
     Route: 048
     Dates: start: 20110318, end: 20110519
  4. ASPIRIN [Concomitant]
  5. COREG [Concomitant]
  6. SIMVASTATIN [Concomitant]
  7. MULTAQ [Suspect]
     Indication: ATRIAL FLUTTER
     Route: 048
     Dates: start: 20110318, end: 20110519

REACTIONS (1)
  - SUDDEN DEATH [None]
